FAERS Safety Report 13134142 (Version 5)
Quarter: 2017Q1

REPORT INFORMATION
  Report Type: Report from Study
  Country: US (occurrence: US)
  Receive Date: 20170120
  Receipt Date: 20170323
  Transmission Date: 20170428
  Serious: Yes (Other)
  Sender: FDA-Public Use
  Company Number: US-BAYER-2016-217898

PATIENT
  Age: 51 Year
  Sex: Female
  Weight: 113.38 kg

DRUGS (7)
  1. ADEMPAS [Suspect]
     Active Substance: RIOCIGUAT
     Indication: PULMONARY ARTERIAL HYPERTENSION
     Dosage: 1 MG, TID
     Route: 048
  2. OPSUMIT [Suspect]
     Active Substance: MACITENTAN
     Dosage: UNK
  3. ADEMPAS [Suspect]
     Active Substance: RIOCIGUAT
     Indication: PULMONARY ARTERIAL HYPERTENSION
     Dosage: 0.5 MG, TID
     Route: 048
  4. ADEMPAS [Suspect]
     Active Substance: RIOCIGUAT
     Indication: PULMONARY ARTERIAL HYPERTENSION
     Dosage: 1 MG, TID
     Route: 048
  5. ADEMPAS [Suspect]
     Active Substance: RIOCIGUAT
     Indication: PULMONARY ARTERIAL HYPERTENSION
     Dosage: UNK
     Route: 048
     Dates: start: 20170202
  6. ADEMPAS [Suspect]
     Active Substance: RIOCIGUAT
     Indication: PULMONARY ARTERIAL HYPERTENSION
     Dosage: UNK
     Dates: start: 20161027
  7. ADEMPAS [Suspect]
     Active Substance: RIOCIGUAT
     Indication: PULMONARY ARTERIAL HYPERTENSION
     Dosage: 0.5 MG, TID
     Route: 048

REACTIONS (16)
  - Rib fracture [Unknown]
  - Myalgia [Unknown]
  - Hypertension [Unknown]
  - Somnolence [Unknown]
  - Feeling hot [Unknown]
  - Constipation [Unknown]
  - Peripheral swelling [None]
  - Rheumatoid arthritis [Unknown]
  - Drug dose omission [Unknown]
  - Product use issue [Unknown]
  - Muscle strain [Unknown]
  - Diarrhoea [Recovered/Resolved]
  - Gout [None]
  - Catheterisation cardiac [None]
  - Blood pressure immeasurable [Unknown]
  - Pain in extremity [None]

NARRATIVE: CASE EVENT DATE: 20170223
